FAERS Safety Report 13976191 (Version 1)
Quarter: 2017Q3

REPORT INFORMATION
  Report Type: Spontaneous
  Country: TR (occurrence: TR)
  Receive Date: 20170915
  Receipt Date: 20170915
  Transmission Date: 20171128
  Serious: Yes (Hospitalization)
  Sender: FDA-Public Use
  Company Number: TR-BION-006633

PATIENT
  Age: 15 Year
  Sex: Female

DRUGS (1)
  1. VALPROIC ACID. [Suspect]
     Active Substance: VALPROIC ACID
     Indication: BIPOLAR DISORDER
     Dosage: 750 MG/DAY

REACTIONS (1)
  - Pleural effusion [Recovered/Resolved]
